FAERS Safety Report 25849170 (Version 1)
Quarter: 2025Q3

REPORT INFORMATION
  Report Type: Spontaneous
  Country: EG (occurrence: EG)
  Receive Date: 20250925
  Receipt Date: 20250925
  Transmission Date: 20251021
  Serious: Yes (Other)
  Sender: PHARMACEUTICAL ASSOC
  Company Number: EG-PAIPHARMA-2025-EG-000002

PATIENT
  Age: 27 Year
  Sex: Female

DRUGS (1)
  1. PREDNISOLONE SODIUM PHOSPHATE [Suspect]
     Active Substance: PREDNISOLONE SODIUM PHOSPHATE
     Indication: Weight increased

REACTIONS (3)
  - Ulcerative keratitis [Unknown]
  - Corneal perforation [Unknown]
  - Drug abuse [Unknown]
